FAERS Safety Report 9633507 (Version 3)
Quarter: 2014Q1

REPORT INFORMATION
  Report Type: Report from Study
  Country: CL (occurrence: CL)
  Receive Date: 20131021
  Receipt Date: 20140109
  Transmission Date: 20141002
  Serious: Yes (Other)
  Sender: FDA-Public Use
  Company Number: PHHY2013CL117906

PATIENT
  Age: 87 Year
  Sex: Female

DRUGS (4)
  1. EXFORGE [Suspect]
     Indication: HYPERTENSION
     Dosage: 1 DF (80/5MG), QD ( IN THE MORNING)
     Route: 048
  2. LIPOTROPIC [Concomitant]
     Indication: BLOOD CHOLESTEROL INCREASED
     Dosage: 1 DF, PER DAY
     Route: 048
  3. HIDRORONOL T [Concomitant]
     Indication: HYPERTENSION
     Dosage: 0.5 DF, PER DAY
     Route: 048
  4. EUTIROX [Concomitant]
     Indication: HYPOTHYROIDISM
     Dosage: 50 UG, PER DAY
     Route: 048

REACTIONS (5)
  - Fall [Unknown]
  - Foot fracture [Recovering/Resolving]
  - Ligament sprain [Recovering/Resolving]
  - Gait disturbance [Unknown]
  - Pain in extremity [Not Recovered/Not Resolved]
